FAERS Safety Report 16141032 (Version 1)
Quarter: 2019Q2

REPORT INFORMATION
  Report Type: Spontaneous
  Country: CN (occurrence: CN)
  Receive Date: 20190401
  Receipt Date: 20190401
  Transmission Date: 20190711
  Serious: Yes (Other)
  Sender: FDA-Public Use
  Company Number: CN-BAXTER-2019BAX006207

PATIENT
  Age: 50 Year
  Sex: Female
  Weight: 55.5 kg

DRUGS (12)
  1. ENDOXAN [Suspect]
     Active Substance: CYCLOPHOSPHAMIDE
     Indication: BREAST CANCER FEMALE
     Dosage: DOSAGE FORM: INJECTION, 4TH CHEMOTHERAPY, ENDOXAN 800 MG + NS 40 ML
     Route: 042
     Dates: start: 20190218, end: 20190218
  2. 0.9% SODIUM CHLORIDE INJECTION [Suspect]
     Active Substance: SODIUM CHLORIDE
     Dosage: PHARMORUBICIN RD 110 MG + NS 100 ML, 4TH CHEMOTHERAPY
     Route: 041
     Dates: start: 20190218, end: 20190218
  3. PHARMORUBICIN RD [Suspect]
     Active Substance: EPIRUBICIN
     Dosage: PHARMORUBICIN RD + NS, 1ST TO 3RD CHEMOTHERAPY
     Route: 041
  4. ENDOXAN [Suspect]
     Active Substance: CYCLOPHOSPHAMIDE
     Dosage: DOSAGE FORM: INJECTION, ENDOXAN + NS, DOSE RE-INTRODUCED
     Route: 042
  5. PHARMORUBICIN RD [Suspect]
     Active Substance: EPIRUBICIN
     Indication: BREAST CANCER FEMALE
     Dosage: PHARMORUBICIN RD 110 MG + NS 100 ML, 4TH CHEMOTHERAPY
     Route: 041
     Dates: start: 20190218, end: 20190218
  6. ENDOXAN [Suspect]
     Active Substance: CYCLOPHOSPHAMIDE
     Dosage: DOSAGE FORM: INJECTION, ENDOXAN + NS, 1ST TO 3RD CHEMOTHERAPY
     Route: 042
  7. 0.9% SODIUM CHLORIDE INJECTION [Suspect]
     Active Substance: SODIUM CHLORIDE
     Dosage: ENDOXAN + NS, DOSE RE-INTRODUCED
     Route: 042
  8. PHARMORUBICIN RD [Suspect]
     Active Substance: EPIRUBICIN
     Dosage: PHARMORUBICIN RD + NS, DOSE RE-INTRODUCED
     Route: 041
  9. 0.9% SODIUM CHLORIDE INJECTION [Suspect]
     Active Substance: SODIUM CHLORIDE
     Indication: MEDICATION DILUTION
     Dosage: ENDOXAN 800 MG + NS 40 ML, 4TH CHEMOTHERAPY
     Route: 042
     Dates: start: 20190218, end: 20190218
  10. 0.9% SODIUM CHLORIDE INJECTION [Suspect]
     Active Substance: SODIUM CHLORIDE
     Dosage: PHARMORUBICIN RD + NS, DOSE RE-INTRODUCED
     Route: 041
  11. 0.9% SODIUM CHLORIDE INJECTION [Suspect]
     Active Substance: SODIUM CHLORIDE
     Dosage: ENDOXAN + NS, 1ST TO 3RD CHEMOTHERAPY
     Route: 042
  12. 0.9% SODIUM CHLORIDE INJECTION [Suspect]
     Active Substance: SODIUM CHLORIDE
     Dosage: PHARMORUBICIN RD + NS, 1ST TO 3RD CHEMOTHERAPY
     Route: 041

REACTIONS (1)
  - Granulocytopenia [Recovered/Resolved]

NARRATIVE: CASE EVENT DATE: 20190227
